FAERS Safety Report 9766746 (Version 1)
Quarter: 2013Q4

REPORT INFORMATION
  Report Type: Spontaneous
  Country: US (occurrence: None)
  Receive Date: 20131216
  Receipt Date: 20131216
  Transmission Date: 20140711
  Serious: Yes (Death, Other)
  Sender: FDA-Public Use
  Company Number: None

PATIENT
  Age: 17 Year
  Sex: Female

DRUGS (6)
  1. RAPAMUNE [Suspect]
     Indication: HEART TRANSPLANT
     Dosage: 3 TABS DAILY ORAL
     Dates: start: 20130228
  2. TACROLIMUS [Suspect]
     Dosage: 4 CAP BID ORAL
     Dates: start: 20130228
  3. SIMVASTATIN [Concomitant]
  4. FLUCONAZOLE [Concomitant]
  5. LANSOPRAZOLE [Concomitant]
  6. LISINOPRIL [Concomitant]

REACTIONS (3)
  - Death [None]
  - Disease progression [None]
  - Unevaluable event [None]
